FAERS Safety Report 5747333-4 (Version None)
Quarter: 2008Q2

REPORT INFORMATION
  Report Type: 
  Country: None (occurrence: None)
  Receive Date: 20080523
  Receipt Date: 20080514
  Transmission Date: 20081010
  Serious: Yes (Other)
  Sender: FDA-Public Use
  Company Number: FR-JNJFOC-20080300792

PATIENT
  Age: 83 Year
  Sex: Male

DRUGS (1)
  1. TAVANIC [Suspect]
     Indication: BRONCHITIS CHRONIC
     Route: 048

REACTIONS (3)
  - ECZEMA [None]
  - OEDEMA PERIPHERAL [None]
  - TENDONITIS [None]
